FAERS Safety Report 19468532 (Version 1)
Quarter: 2021Q2

REPORT INFORMATION
  Report Type: Report from Study
  Country: BR (occurrence: BR)
  Receive Date: 20210628
  Receipt Date: 20210628
  Transmission Date: 20210717
  Serious: Yes (Hospitalization)
  Sender: FDA-Public Use
  Company Number: NVSC2021BR135872

PATIENT
  Age: 93 Year
  Sex: Female

DRUGS (2)
  1. ENTRESTO [Suspect]
     Active Substance: SACUBITRIL\VALSARTAN
     Indication: CARDIAC DISORDER
     Dosage: UNK
     Route: 065
     Dates: start: 202101
  2. RISPERIDONE. [Suspect]
     Active Substance: RISPERIDONE
     Indication: FEELING OF RELAXATION
     Dosage: 1 MG
     Route: 065

REACTIONS (6)
  - Hypersomnia [Unknown]
  - Product use in unapproved indication [Unknown]
  - Memory impairment [Not Recovered/Not Resolved]
  - Aphasia [Unknown]
  - Somnolence [Unknown]
  - Drooling [Unknown]

NARRATIVE: CASE EVENT DATE: 202106
